FAERS Safety Report 6916535-3 (Version None)
Quarter: 2010Q3

REPORT INFORMATION
  Report Type: 
  Country: None (occurrence: None)
  Receive Date: 20100810
  Receipt Date: 20100804
  Transmission Date: 20110219
  Serious: Yes (Other)
  Sender: FDA-Public Use
  Company Number: US-BRISTOL-MYERS SQUIBB COMPANY-15225394

PATIENT
  Age: 73 Year
  Sex: Male

DRUGS (4)
  1. ONGLYZA [Suspect]
  2. LISINOPRIL [Suspect]
  3. ACTOS [Concomitant]
  4. AMARIL D [Concomitant]

REACTIONS (2)
  - LIP SWELLING [None]
  - SWOLLEN TONGUE [None]
